FAERS Safety Report 25563408 (Version 3)
Quarter: 2025Q3

REPORT INFORMATION
  Report Type: Report from Study
  Country: US (occurrence: US)
  Receive Date: 20250716
  Receipt Date: 20250721
  Transmission Date: 20251021
  Serious: Yes (Other)
  Sender: SUNOVION
  Company Number: US-SUMITOMO PHARMA SWITZERLAND GMBH-2025SPA008144

PATIENT

DRUGS (2)
  1. ORGOVYX [Suspect]
     Active Substance: RELUGOLIX
     Indication: Prostate cancer
     Route: 048
  2. ORGOVYX [Suspect]
     Active Substance: RELUGOLIX
     Route: 048
     Dates: start: 20250609

REACTIONS (9)
  - Hyphaema [Unknown]
  - Cold flash [Unknown]
  - Urethral spasm [Unknown]
  - Mobility decreased [Unknown]
  - Contusion [Unknown]
  - Arthralgia [Unknown]
  - Hot flush [Unknown]
  - Asthenia [Unknown]
  - Weight increased [Unknown]
